FAERS Safety Report 7496787-4 (Version None)
Quarter: 2011Q2

REPORT INFORMATION
  Report Type: 
  Country: None (occurrence: None)
  Receive Date: 20110523
  Receipt Date: 20110518
  Transmission Date: 20111010
  Serious: Yes (Hospitalization)
  Sender: FDA-Public Use
  Company Number: Z0008172B

PATIENT
  Sex: Male
  Weight: 79.2 kg

DRUGS (19)
  1. LOPERAMIDE [Concomitant]
     Dosage: 2MG AS REQUIRED
     Route: 048
  2. MOVIPREP [Concomitant]
     Indication: CONSTIPATION
     Route: 048
  3. ATORVASTATIN [Concomitant]
     Indication: BLOOD CHOLESTEROL INCREASED
     Dosage: 10MG PER DAY
     Route: 048
  4. DALTEPARIN SODIUM [Concomitant]
     Indication: PROPHYLAXIS
     Dosage: 5000IU PER DAY
     Route: 058
  5. DILTIAZEM [Concomitant]
     Indication: HYPERTENSION
     Dosage: 240MG PER DAY
     Route: 048
  6. SUNITINIB MALATE [Suspect]
     Indication: RENAL CELL CARCINOMA
     Dosage: 50MG PER DAY
     Route: 048
  7. CREON [Concomitant]
     Route: 048
     Dates: start: 20100921, end: 20100921
  8. ZOPICLONE [Concomitant]
     Indication: INSOMNIA
     Dosage: 3.75MG PER DAY
     Route: 048
  9. FINASTERIDE [Concomitant]
     Route: 048
  10. PAZOPANIB [Suspect]
     Indication: RENAL CELL CARCINOMA
     Route: 048
     Dates: start: 20101006
  11. CREON [Concomitant]
     Indication: PANCREATIC INSUFFICIENCY
     Dosage: 10000IU AS REQUIRED
     Route: 048
     Dates: start: 20100921
  12. MACROGOL [Concomitant]
     Indication: CONSTIPATION
     Route: 048
  13. DOMPERIDONE [Concomitant]
     Indication: NAUSEA
     Dosage: 10MG THREE TIMES PER DAY
     Route: 048
  14. BENDROFLUMETHIAZIDE [Concomitant]
     Indication: HYPERTENSION
     Dosage: 2.5MG PER DAY
     Route: 048
  15. MELOXICAM [Concomitant]
     Indication: OSTEOARTHRITIS
     Dosage: 7.5MG PER DAY
  16. METFORMIN [Concomitant]
     Dosage: 400MG THREE TIMES PER DAY
     Route: 048
  17. NYSTATIN [Concomitant]
     Indication: FUNGAL INFECTION
     Dosage: 100000IU FOUR TIMES PER DAY
     Route: 048
  18. DOXAZOSIN MESYLATE [Concomitant]
     Indication: HYPERTENSION
     Dosage: 8MG PER DAY
     Route: 048
  19. CIPROFLOXACIN [Concomitant]

REACTIONS (2)
  - FATIGUE [None]
  - PANCYTOPENIA [None]
